FAERS Safety Report 21623184 (Version 1)
Quarter: 2022Q4

REPORT INFORMATION
  Report Type: Spontaneous
  Country: ES (occurrence: ES)
  Receive Date: 20221121
  Receipt Date: 20221121
  Transmission Date: 20230113
  Serious: Yes (Hospitalization, Other)
  Sender: FDA-Public Use
  Company Number: None

PATIENT
  Age: 78 Year
  Sex: Female

DRUGS (17)
  1. ALDACTONE [Suspect]
     Active Substance: SPIRONOLACTONE
     Indication: Hypertensive heart disease
     Dosage: 50 MG (DE)
     Route: 048
     Dates: start: 20220205
  2. BISOPROLOL FUMARATE [Suspect]
     Active Substance: BISOPROLOL FUMARATE
     Indication: Peripheral vascular disorder
     Dosage: 2.5 MG (BREAKFAST, DINNER)
     Route: 048
     Dates: start: 20151219
  3. NOVORAPID [Concomitant]
     Active Substance: INSULIN ASPART
     Indication: Diabetes mellitus
     Dosage: 38 IU, DAILY
     Route: 058
     Dates: start: 20111012
  4. JARDIANCE [Concomitant]
     Active Substance: EMPAGLIFLOZIN
     Indication: Diabetes mellitus
     Dosage: 25 MG, DAILY
     Route: 048
     Dates: start: 20181113
  5. OMEPRAZOLE [Concomitant]
     Active Substance: OMEPRAZOLE
     Indication: Diabetes mellitus
     Dosage: 40 MG (A-DE)
     Route: 048
     Dates: start: 20201213
  6. FERROUS SULFATE [Concomitant]
     Active Substance: FERROUS SULFATE
     Indication: Anaemia
     Dosage: 105 MG, DAILY (AM)
     Route: 048
     Dates: start: 20200227
  7. PARACETAMOL CINFA [Concomitant]
     Indication: Spinal osteoarthritis
     Dosage: 0.5 G (BREAKFAST, LUNCH, DINNER)
     Route: 048
     Dates: start: 20190403
  8. ASPIRIN [Concomitant]
     Active Substance: ASPIRIN
     Indication: Acute myocardial infarction
     Dosage: 100 MG (BREAKFAST)
     Route: 048
     Dates: start: 20070315
  9. PREDNISONE [Concomitant]
     Active Substance: PREDNISONE
     Indication: Polymyalgia rheumatica
     Dosage: 5 MG (BREAKFAST)
     Route: 048
     Dates: start: 20220624
  10. PREDNISONE [Concomitant]
     Active Substance: PREDNISONE
     Indication: Anaemia
     Dosage: 15 MG (BREAKFAST)
     Route: 048
     Dates: start: 20220611
  11. ALOPURINOL CINFA [Concomitant]
     Indication: Myocardial ischaemia
     Dosage: 100 MG (BREAKFAST)
     Route: 048
     Dates: start: 20220205
  12. FUROSEMIDE [Concomitant]
     Active Substance: FUROSEMIDE
     Indication: Peripheral vascular disorder
     Dosage: 40 MG (BREAKFAST)
     Route: 048
     Dates: start: 20210909
  13. FOLIC ACID [Concomitant]
     Active Substance: FOLIC ACID
     Indication: Bronchitis chronic
     Dosage: 5 MG, DAILY
     Route: 048
     Dates: start: 20180301
  14. CHOLECALCIFEROL [Concomitant]
     Active Substance: CHOLECALCIFEROL
     Indication: Diabetes mellitus
     Dosage: 25000 IU, CYCLIC (EVERY 15 DAYS)
     Route: 048
     Dates: start: 20180116
  15. TOUJEO [Concomitant]
     Active Substance: INSULIN GLARGINE
     Indication: Diabetes mellitus
     Dosage: 50 IU, DAILY
     Route: 058
     Dates: start: 20170714
  16. CAFINITRINA RETARD [Concomitant]
     Indication: Myocardial ischaemia
     Dosage: 1 MG, CYCLIC (EVERY 72 H)
     Route: 060
     Dates: start: 20181113
  17. ATORVASTATIN CALCIUM [Concomitant]
     Active Substance: ATORVASTATIN CALCIUM
     Indication: Hyperlipidaemia
     Dosage: 40 MG (CE)
     Route: 048
     Dates: start: 20181112

REACTIONS (2)
  - Bradycardia [Recovering/Resolving]
  - Hyperkalaemia [Recovering/Resolving]

NARRATIVE: CASE EVENT DATE: 20221101
